FAERS Safety Report 5486781-7 (Version None)
Quarter: 2007Q4

REPORT INFORMATION
  Report Type: 
  Country: None (occurrence: None)
  Receive Date: 20071016
  Receipt Date: 20071008
  Transmission Date: 20080405
  Serious: Yes (Life-Threatening, Hospitalization)
  Sender: FDA-Public Use
  Company Number: B0491016A

PATIENT
  Age: 36 Year
  Sex: Female

DRUGS (7)
  1. ZINNAT INJECTABLE [Suspect]
     Dosage: 250MG UNKNOWN
     Route: 042
     Dates: start: 20070607
  2. NIMBEX [Concomitant]
     Route: 042
     Dates: start: 20070607
  3. ULTIVA [Concomitant]
     Route: 042
     Dates: start: 20070607
  4. DIPRIVAN [Concomitant]
     Route: 042
     Dates: start: 20070607
  5. ATARAX [Concomitant]
     Route: 065
  6. XANAX [Concomitant]
     Route: 065
  7. VIRLIX [Concomitant]
     Route: 065

REACTIONS (5)
  - ANAPHYLACTIC REACTION [None]
  - CIRCULATORY COLLAPSE [None]
  - ERYTHEMA [None]
  - HYPERSENSITIVITY [None]
  - OXYGEN SATURATION DECREASED [None]
